FAERS Safety Report 5087117-6 (Version None)
Quarter: 2006Q3

REPORT INFORMATION
  Report Type: 
  Country: None (occurrence: None)
  Receive Date: 20060821
  Receipt Date: 20060810
  Transmission Date: 20061208
  Serious: Yes (Disabling, Other)
  Sender: FDA-Public Use
  Company Number: 2006072125

PATIENT
  Age: 69 Year
  Sex: Male
  Weight: 69 kg

DRUGS (21)
  1. XALATAN [Suspect]
     Indication: GLAUCOMA
     Dosage: 2 DROP (2 IN 1 D), OPHTHALMIC
     Route: 047
     Dates: start: 20051101
  2. TIMOLOL MALEATE [Concomitant]
  3. MAXIDEX (BENZALKONIUM CHLORIDE, DEXAMETHASONE, PHENYLMERCURIC NITRATE) [Concomitant]
  4. ATROPINE [Concomitant]
  5. ALL OTHER THERAPEUTIC PRODUCTS (ALL OTHER THERAPEUTIC PRODUCTS) [Concomitant]
  6. INSULIN [Concomitant]
  7. RAMIPRIL [Concomitant]
  8. DILTIAZEM [Concomitant]
  9. CLOPIDOGREL [Concomitant]
  10. LANSOPRAZOLE [Concomitant]
  11. CARVEDILOL [Concomitant]
  12. CANDESARTAN (CANDESARTAN) [Concomitant]
  13. CRESTOR [Concomitant]
  14. SLOZEM (DILTIAZEM HYDROCHLORIDE) [Concomitant]
  15. NITROGLYCERIN [Concomitant]
  16. HUMULIN S (INSULIN HUMAN) [Concomitant]
  17. HUMULIN I (INSULIN HUMAN  INJECTION, ISOPHANE) [Concomitant]
  18. NICORANDIL (NICORANDIL) [Concomitant]
  19. ISMO [Concomitant]
  20. ASPIRIN [Concomitant]
  21. NITROGLYCERIN [Concomitant]

REACTIONS (2)
  - DYSPNOEA [None]
  - WHEEZING [None]
